FAERS Safety Report 11114466 (Version 1)
Quarter: 2015Q2

REPORT INFORMATION
  Report Type: Spontaneous
  Country: GB (occurrence: GB)
  Receive Date: 20150515
  Receipt Date: 20150515
  Transmission Date: 20150821
  Serious: Yes (Hospitalization)
  Sender: FDA-Public Use
  Company Number: GB-009507513-1505GBR006052

PATIENT
  Age: 79 Year
  Sex: Female
  Weight: 77.1 kg

DRUGS (6)
  1. BISOPROLOL [Concomitant]
     Active Substance: BISOPROLOL
  2. ALENDRONATE SODIUM. [Suspect]
     Active Substance: ALENDRONATE SODIUM
     Dosage: 70 MG, QW
     Route: 048
     Dates: start: 2005, end: 20150428
  3. CANDESARTAN [Concomitant]
     Active Substance: CANDESARTAN
  4. BETAHISTINE [Concomitant]
     Active Substance: BETAHISTINE
  5. PREDNISOLONE. [Concomitant]
     Active Substance: PREDNISOLONE
  6. LANSOPRAZOLE. [Concomitant]
     Active Substance: LANSOPRAZOLE

REACTIONS (1)
  - Atypical fracture [Recovering/Resolving]

NARRATIVE: CASE EVENT DATE: 2005
